FAERS Safety Report 19543603 (Version 1)
Quarter: 2021Q3

REPORT INFORMATION
  Report Type: Report from Study
  Country: None (occurrence: US)
  Receive Date: 20210713
  Receipt Date: 20210713
  Transmission Date: 20211014
  Serious: Yes (Other)
  Sender: FDA-Public Use
  Company Number: US-ABBVIE-21K-163-3940564-00

PATIENT
  Sex: Male

DRUGS (2)
  1. HUMIRA [Suspect]
     Active Substance: ADALIMUMAB
     Indication: RHEUMATOID ARTHRITIS
  2. HUMIRA [Suspect]
     Active Substance: ADALIMUMAB
     Indication: CROHN^S DISEASE
     Route: 058

REACTIONS (11)
  - Bursitis [Not Recovered/Not Resolved]
  - Breast mass [Not Recovered/Not Resolved]
  - Cyst [Unknown]
  - Breast pain [Unknown]
  - Hormone level abnormal [Not Recovered/Not Resolved]
  - Hip arthroplasty [Recovered/Resolved]
  - Pruritus [Recovering/Resolving]
  - Gynaecomastia [Unknown]
  - Renal cyst [Unknown]
  - Mass [Not Recovered/Not Resolved]
  - Muscle injury [Not Recovered/Not Resolved]

NARRATIVE: CASE EVENT DATE: 2021
